FAERS Safety Report 4631827-9 (Version None)
Quarter: 2005Q2

REPORT INFORMATION
  Report Type: 
  Country: None (occurrence: None)
  Receive Date: 20050411
  Receipt Date: 20050330
  Transmission Date: 20051028
  Serious: Yes (Hospitalization, Disabling, Other)
  Sender: FDA-Public Use
  Company Number: US-JNJFOC-20041203995

PATIENT
  Sex: Male
  Weight: 88.45 kg

DRUGS (7)
  1. REMICADE [Suspect]
     Route: 042
  2. REMICADE [Suspect]
     Indication: CROHN'S DISEASE
     Route: 042
  3. VALIUM [Concomitant]
     Indication: ANXIETY
  4. AMBIEN [Concomitant]
  5. LEVSIN [Concomitant]
  6. LONOX [Concomitant]
  7. LONOX [Concomitant]

REACTIONS (6)
  - APPENDICECTOMY [None]
  - CHOLECYSTECTOMY [None]
  - HEADACHE [None]
  - INTESTINAL RESECTION [None]
  - TYPE III IMMUNE COMPLEX MEDIATED REACTION [None]
  - VISION BLURRED [None]
